FAERS Safety Report 17761436 (Version 2)
Quarter: 2020Q2

REPORT INFORMATION
  Report Type: Spontaneous
  Country: US (occurrence: US)
  Receive Date: 20200508
  Receipt Date: 20200528
  Transmission Date: 20200714
  Serious: Yes (Hospitalization, Other)
  Sender: FDA-Public Use
  Company Number: US-VERTEX PHARMACEUTICALS-2020-010044

PATIENT
  Age: 29 Year
  Sex: Male
  Weight: 53 kg

DRUGS (39)
  1. ENOXAPARIN [Concomitant]
     Active Substance: ENOXAPARIN
     Dosage: 40 MG, QAM
     Route: 058
  2. INSULIN LISPRO [Concomitant]
     Active Substance: INSULIN LISPRO
     Dosage: 0.67 UNITS/ HR (INFUSION)
     Dates: start: 20200322
  3. DOCUSATE [Concomitant]
     Active Substance: DOCUSATE
  4. HEPARIN [Concomitant]
     Active Substance: HEPARIN SODIUM
  5. POTASSIUM CHLORIDE. [Concomitant]
     Active Substance: POTASSIUM CHLORIDE
  6. TRIKAFTA [Suspect]
     Active Substance: ELEXACAFTOR\IVACAFTOR\TEZACAFTOR
     Indication: CYSTIC FIBROSIS
     Dosage: 2 TABS IN AM AND 1 TAB IN PM
     Route: 048
     Dates: start: 20200114, end: 20200421
  7. MIRTAZAPINE. [Concomitant]
     Active Substance: MIRTAZAPINE
     Dosage: 7.5 MG, QHS
     Route: 048
  8. OXYCODONE [Concomitant]
     Active Substance: OXYCODONE
     Dosage: 2.5 MG, Q4H
     Route: 048
  9. PREDNISONE. [Concomitant]
     Active Substance: PREDNISONE
     Dosage: 5 MG, QD
     Route: 048
  10. TOBRAMYCIN. [Concomitant]
     Active Substance: TOBRAMYCIN
     Dosage: 300 MG, BID
  11. PERIDEX [CHLORHEXIDINE GLUCONATE] [Concomitant]
     Indication: TOOTH EXTRACTION
  12. HYDROMORPHONE [Concomitant]
     Active Substance: HYDROMORPHONE
  13. INSULIN LISPRO [Concomitant]
     Active Substance: INSULIN LISPRO
     Dosage: QACHS
     Route: 058
  14. TACROLIMUS. [Concomitant]
     Active Substance: TACROLIMUS
     Dosage: 2 MG, QHS
     Route: 048
  15. DEXTRAN [Concomitant]
     Active Substance: DEXTRAN
     Dosage: UNK
     Route: 042
     Dates: start: 20200325
  16. AUGMENTIN [Concomitant]
     Active Substance: AMOXICILLIN\CLAVULANATE POTASSIUM
     Indication: TOOTH EXTRACTION
  17. ONDANSETRON [Concomitant]
     Active Substance: ONDANSETRON
  18. CETRIZINE [Concomitant]
     Active Substance: CETIRIZINE HYDROCHLORIDE
     Dosage: 10 MG, QD
     Route: 048
  19. SERTRALINE [Concomitant]
     Active Substance: SERTRALINE HYDROCHLORIDE
     Dosage: 100 MG, QD
     Route: 048
  20. UNASYN [AMPICILLIN SODIUM;SULBACTAM SODIUM] [Concomitant]
     Dosage: 3 GRAM, Q6H
     Route: 042
  21. CHLORHEXIDINE [Concomitant]
     Active Substance: CHLORHEXIDINE
     Dosage: 15 MILLILITER, TID
     Route: 048
  22. FERROUS SULFATE. [Concomitant]
     Active Substance: FERROUS SULFATE
     Dosage: 324 MG, QD
     Route: 048
  23. GABAPENTIN. [Concomitant]
     Active Substance: GABAPENTIN
     Dosage: 300 MG, QHS
     Route: 048
  24. MYCOPHENOLATE MOFETIL. [Concomitant]
     Active Substance: MYCOPHENOLATE MOFETIL
     Dosage: 250 MG, BID
     Route: 048
  25. OXYCODONE [Concomitant]
     Active Substance: OXYCODONE
     Dosage: LOW DOSE
     Dates: start: 20200324
  26. PANTOPRAZOLE [Concomitant]
     Active Substance: PANTOPRAZOLE
     Dosage: 40 MG, BID
     Route: 048
  27. ALBUTEROL [SALBUTAMOL] [Concomitant]
     Active Substance: ALBUTEROL
     Dosage: 2 PUFFS, Q4H
     Route: 055
  28. IPRATROPIUM [Concomitant]
     Active Substance: IPRATROPIUM
     Dosage: 2 PUFF, Q4H
     Route: 055
  29. SENNOSIDES. [Concomitant]
     Active Substance: SENNOSIDES
     Dosage: 17.2 MG, BID
     Route: 048
  30. TACROLIMUS. [Concomitant]
     Active Substance: TACROLIMUS
     Dosage: 2.5 MG, QD
     Route: 048
  31. SODIUM CHLORIDE. [Concomitant]
     Active Substance: SODIUM CHLORIDE
  32. AZITHROMYCIN ANHYDROUS. [Concomitant]
     Active Substance: AZITHROMYCIN ANHYDROUS
     Dosage: 250 MG, Q MWF
     Route: 048
  33. PANCRELIPASE. [Concomitant]
     Active Substance: PANCRELIPASE
     Dosage: 100000 INTERNATIONAL UNIT, TID W/MEALS
     Route: 048
  34. SULFAMETHOXAZOLE AND TRIMETHOPRIM [Concomitant]
     Active Substance: SULFAMETHOXAZOLE\TRIMETHOPRIM
     Dosage: 1 DOSAGE FORM, Q MWF
     Route: 048
  35. TOBI [Concomitant]
     Active Substance: TOBRAMYCIN
     Dosage: EVERY OTHER MONTH (MAR-2020 IS OFF)
     Route: 055
  36. MAGNESIUM OXIDE. [Concomitant]
     Active Substance: MAGNESIUM OXIDE
  37. MAGNESIUM SULFATE. [Concomitant]
     Active Substance: MAGNESIUM SULFATE
     Route: 042
  38. BASILIXIMAB [Concomitant]
     Active Substance: BASILIXIMAB
  39. DARBOSIS [Concomitant]

REACTIONS (2)
  - Obliterative bronchiolitis [Unknown]
  - Respiratory failure [Unknown]

NARRATIVE: CASE EVENT DATE: 20200320
